FAERS Safety Report 4876308-2 (Version None)
Quarter: 2006Q1

REPORT INFORMATION
  Report Type: 
  Country: None (occurrence: None)
  Receive Date: 20060110
  Receipt Date: 20060104
  Transmission Date: 20060701
  Serious: Yes (Hospitalization)
  Sender: FDA-Public Use
  Company Number: MX-BOEHRINGER INGELHEIM PHARMACEUTICALS, INC.-2006-BP-00073MX

PATIENT
  Age: 90 Year
  Sex: Male

DRUGS (1)
  1. SECOTEX CAPSULES 0.4MG [Suspect]
     Route: 048
     Dates: start: 20050214

REACTIONS (1)
  - URINARY RETENTION [None]
